FAERS Safety Report 25490219 (Version 1)
Quarter: 2025Q2

REPORT INFORMATION
  Report Type: Spontaneous
  Country: US (occurrence: US)
  Receive Date: 20250628
  Receipt Date: 20250628
  Transmission Date: 20250717
  Serious: No
  Sender: UPSHER SMITH LABORATORIES
  Company Number: US-UPSHER-SMITH LABORATORIES, LLC-20240900138

PATIENT
  Age: 0 Year
  Sex: Female

DRUGS (3)
  1. VIGADRONE [Suspect]
     Active Substance: VIGABATRIN
     Indication: Infantile spasms
     Route: 048
     Dates: start: 20240919
  2. VIGADRONE [Suspect]
     Active Substance: VIGABATRIN
     Route: 048
  3. BACLOFEN [Suspect]
     Active Substance: BACLOFEN
     Indication: Product used for unknown indication
     Route: 065

REACTIONS (4)
  - Infantile spitting up [Not Recovered/Not Resolved]
  - Rhinovirus infection [Recovered/Resolved]
  - Infantile back arching [Unknown]
  - Drug titration error [Unknown]

NARRATIVE: CASE EVENT DATE: 20240901
